FAERS Safety Report 6465523-2 (Version None)
Quarter: 2009Q4

REPORT INFORMATION
  Report Type: 
  Country: None (occurrence: None)
  Receive Date: 20091201
  Receipt Date: 20081120
  Transmission Date: 20100525
  Serious: No
  Sender: FDA-Public Use
  Company Number: US-AMGEN-KDL314023

PATIENT
  Sex: Female

DRUGS (1)
  1. ENBREL [Suspect]
     Indication: PSORIATIC ARTHROPATHY
     Route: 058
     Dates: start: 20081016, end: 20081031

REACTIONS (4)
  - INFECTION [None]
  - INJURY [None]
  - SKIN LACERATION [None]
  - WOUND HAEMORRHAGE [None]
